FAERS Safety Report 7661508-9 (Version None)
Quarter: 2011Q3

REPORT INFORMATION
  Report Type: 
  Country: None (occurrence: None)
  Receive Date: 20110805
  Receipt Date: 20101019
  Transmission Date: 20111222
  Serious: No
  Sender: FDA-Public Use
  Company Number: US-ABBOTT-10P-163-0679419-00

PATIENT
  Sex: Female
  Weight: 70.824 kg

DRUGS (4)
  1. NIASPAN [Suspect]
     Indication: DYSLIPIDAEMIA
     Dosage: IN THE AFTERNOON
     Route: 048
     Dates: start: 20101018
  2. DIOVAN [Concomitant]
     Indication: PRODUCT USED FOR UNKNOWN INDICATION
     Route: 048
  3. LOVAZA [Concomitant]
     Indication: PRODUCT USED FOR UNKNOWN INDICATION
     Route: 048
  4. PREDNISONE [Concomitant]
     Indication: CATARACT OPERATION
     Route: 047

REACTIONS (2)
  - FEELING ABNORMAL [None]
  - BLOOD PRESSURE SYSTOLIC INCREASED [None]
